FAERS Safety Report 19709624 (Version 1)
Quarter: 2021Q3

REPORT INFORMATION
  Report Type: Spontaneous
  Country: US (occurrence: US)
  Receive Date: 20210817
  Receipt Date: 20210817
  Transmission Date: 20211014
  Serious: No
  Sender: FDA-Public Use
  Company Number: US-PFIZER INC-2021570489

PATIENT
  Age: 49 Year
  Sex: Male

DRUGS (1)
  1. GENTAMICIN SULFATE. [Suspect]
     Active Substance: GENTAMICIN SULFATE
     Route: 042

REACTIONS (5)
  - Swelling [Unknown]
  - Vasodilatation [Unknown]
  - Drug hypersensitivity [Unknown]
  - Pruritus [Unknown]
  - Erythema [Unknown]
